FAERS Safety Report 6080997-7 (Version None)
Quarter: 2009Q1

REPORT INFORMATION
  Report Type: 
  Country: None (occurrence: None)
  Receive Date: 20090217
  Receipt Date: 20090209
  Transmission Date: 20090719
  Serious: No
  Sender: FDA-Public Use
  Company Number: US-B.I. PHARMACEUTICALS,INC./RIDGEFIELD-2009-BP-01738BP

PATIENT
  Sex: Female

DRUGS (1)
  1. ATROVENT HFA [Suspect]
     Indication: ASTHMA
     Dosage: 8PUF
     Route: 055

REACTIONS (1)
  - DYSPHONIA [None]
